FAERS Safety Report 5109746-3 (Version None)
Quarter: 2006Q3

REPORT INFORMATION
  Report Type: 
  Country: None (occurrence: None)
  Receive Date: 20060918
  Receipt Date: 20060908
  Transmission Date: 20061208
  Serious: Yes (Death, Hospitalization)
  Sender: FDA-Public Use
  Company Number: 2006SS000069

PATIENT
  Age: 80 Year
  Sex: Female

DRUGS (3)
  1. BOTULINUM TOXIN TYPE B (BOTULINUM TOXIN TYPE B)OFF LABEL USE [Suspect]
     Indication: MUSCLE SPASTICITY
     Dosage: IM
     Route: 030
  2. PREDNISONE TAB [Concomitant]
  3. METHOTREXATE [Concomitant]

REACTIONS (6)
  - CELLULITIS [None]
  - CUTANEOUS VASCULITIS [None]
  - MYCOBACTERIUM CHELONEI INFECTION [None]
  - OFF LABEL USE [None]
  - PNEUMONIA ASPIRATION [None]
  - RESPIRATORY FAILURE [None]
